FAERS Safety Report 19759188 (Version 1)
Quarter: 2021Q3

REPORT INFORMATION
  Report Type: Spontaneous
  Country: US (occurrence: US)
  Receive Date: 20210827
  Receipt Date: 20210827
  Transmission Date: 20211014
  Serious: No
  Sender: FDA-Public Use
  Company Number: US-IGSA-BIG0015762

PATIENT
  Age: 36 Year
  Sex: Female

DRUGS (1)
  1. GAMUNEX?C [Suspect]
     Active Substance: HUMAN IMMUNOGLOBULIN G
     Indication: PRODUCT USED FOR UNKNOWN INDICATION
     Route: 042

REACTIONS (6)
  - Feeling hot [Unknown]
  - Cough [Unknown]
  - Burning sensation [Unknown]
  - Rash [Unknown]
  - Pruritus [Unknown]
  - Paraesthesia oral [Unknown]
